FAERS Safety Report 8166775-3 (Version None)
Quarter: 2012Q1

REPORT INFORMATION
  Report Type: 
  Country: None (occurrence: None)
  Receive Date: 20120227
  Receipt Date: 20101006
  Transmission Date: 20120608
  Serious: Yes (Other)
  Sender: FDA-Public Use
  Company Number: US-UCBSA-019986

PATIENT
  Sex: Male

DRUGS (5)
  1. BIRTH CONTROL [Concomitant]
     Indication: HORMONE REPLACEMENT THERAPY
     Route: 064
     Dates: start: 20100223
  2. LAMOTRIGINE [Concomitant]
     Route: 064
     Dates: start: 20100419
  3. LAMOTRIGINE [Concomitant]
     Route: 064
     Dates: start: 20090520
  4. KEPPRA [Suspect]
     Route: 064
     Dates: start: 20100320
  5. LAMOTRIGINE [Concomitant]
     Route: 064
     Dates: start: 20090720

REACTIONS (2)
  - FOETAL EXPOSURE DURING PREGNANCY [None]
  - PREMATURE BABY [None]
